FAERS Safety Report 10280204 (Version 1)
Quarter: 2014Q3

REPORT INFORMATION
  Report Type: Spontaneous
  Country: US (occurrence: None)
  Receive Date: 20140701
  Receipt Date: 20140701
  Transmission Date: 20150326
  Serious: Yes (Hospitalization, Other)
  Sender: FDA-Public Use
  Company Number: None

PATIENT
  Age: 30 Year
  Sex: Female
  Weight: 57.15 kg

DRUGS (1)
  1. MIRENA [Suspect]
     Active Substance: LEVONORGESTREL

REACTIONS (9)
  - Abdominal pain [None]
  - Device dislocation [None]
  - Impaired work ability [None]
  - Ovarian cyst [None]
  - Haemorrhage [None]
  - Malaise [None]
  - Pain [None]
  - Muscle spasms [None]
  - Pelvic pain [None]

NARRATIVE: CASE EVENT DATE: 20140624
